FAERS Safety Report 19889887 (Version 1)
Quarter: 2021Q3

REPORT INFORMATION
  Report Type: Report from Study
  Country: DE (occurrence: DE)
  Receive Date: 20210927
  Receipt Date: 20210927
  Transmission Date: 20211014
  Serious: Yes (Hospitalization)
  Sender: FDA-Public Use
  Company Number: DE-TAKEDA-2021TUS059175

PATIENT
  Age: 55 Year
  Sex: Male

DRUGS (8)
  1. VIGANTOL OIL [Concomitant]
     Indication: SHORT-BOWEL SYNDROME
     Dosage: 120 MILLIGRAM, QD
     Route: 048
     Dates: start: 2013
  2. TEDUGLUTIDE [Suspect]
     Active Substance: TEDUGLUTIDE
     Indication: SHORT-BOWEL SYNDROME
     Dosage: 3.3 MILLIGRAM, QD
     Route: 065
     Dates: start: 20151203
  3. CALCIUM [Concomitant]
     Active Substance: CALCIUM
     Indication: HYPEROXALURIA
     Dosage: 400 MILLIGRAM, TID
     Route: 048
     Dates: start: 2015
  4. TEDUGLUTIDE [Suspect]
     Active Substance: TEDUGLUTIDE
     Indication: SHORT-BOWEL SYNDROME
     Dosage: 3.3 MILLIGRAM, QD
     Route: 065
     Dates: start: 20151203
  5. REVESTIVE [Concomitant]
     Active Substance: TEDUGLUTIDE
     Indication: SHORT-BOWEL SYNDROME
     Dosage: 3.30 MILLIGRAM, QD
     Route: 058
     Dates: start: 2015
  6. VITAMIN B12 [Concomitant]
     Active Substance: CYANOCOBALAMIN
     Indication: SHORT-BOWEL SYNDROME
     Dosage: 1000 INTERNATIONAL UNIT, MONTHLY IF NECCESSARY
     Route: 058
  7. TEDUGLUTIDE [Suspect]
     Active Substance: TEDUGLUTIDE
     Indication: SHORT-BOWEL SYNDROME
     Dosage: 3.3 MILLIGRAM, QD
     Route: 065
     Dates: start: 20151203
  8. TEDUGLUTIDE [Suspect]
     Active Substance: TEDUGLUTIDE
     Indication: SHORT-BOWEL SYNDROME
     Dosage: 3.3 MILLIGRAM, QD
     Route: 065
     Dates: start: 20151203

REACTIONS (1)
  - Calculus urinary [Recovered/Resolved]

NARRATIVE: CASE EVENT DATE: 20210515
